FAERS Safety Report 5894343-2 (Version None)
Quarter: 2008Q3

REPORT INFORMATION
  Report Type: 
  Country: None (occurrence: None)
  Receive Date: 20080922
  Receipt Date: 20030416
  Transmission Date: 20090109
  Serious: Yes (Life-Threatening, Hospitalization)
  Sender: FDA-Public Use
  Company Number: 430001N03USA

PATIENT
  Age: 49 Year
  Sex: Female
  Weight: 52.16 kg

DRUGS (5)
  1. NOVANTRONE [Suspect]
     Indication: SECONDARY PROGRESSIVE MULTIPLE SCLEROSIS
     Dosage: 21 MG, 1 IN 3 MONTHS, INTRAVENOUS (NOT OTHERWISE SPECIFIED)
     Route: 042
     Dates: start: 20010808, end: 20021113
  2. INTERFERON BETA-1A (INTERFERON BETA) [Concomitant]
  3. METHYLPREDNIOLONE (METHYLPREDNISOLONE) [Concomitant]
  4. INTERFERON BETA-1B (INTERFERON BETA) [Concomitant]
  5. PREDNISONE (PREDNISONE/ 00044701/) [Concomitant]

REACTIONS (1)
  - MYOCARDIAL INFARCTION [None]
